FAERS Safety Report 9231024 (Version 1)
Quarter: 2013Q2

REPORT INFORMATION
  Report Type: Spontaneous
  Country: BR (occurrence: BR)
  Receive Date: 20130415
  Receipt Date: 20130415
  Transmission Date: 20140414
  Serious: Yes (Hospitalization)
  Sender: FDA-Public Use
  Company Number: BR-B.I. PHARMACEUTICALS,INC./RIDGEFIELD-2013-BR-00411BR

PATIENT
  Age: 75 Year
  Sex: Female
  Weight: 62 kg

DRUGS (8)
  1. SPIRIVA RESPIMAT [Suspect]
     Indication: EMPHYSEMA
     Dosage: 5 MCG
     Route: 055
     Dates: start: 2007
  2. ALENIA [Concomitant]
     Indication: EMPHYSEMA
  3. EUTHYROX [Concomitant]
     Indication: HYPOTHYROIDISM
  4. ASTROGERON [Concomitant]
     Indication: LABYRINTHITIS
  5. HYDROCHLOROTHIAZIDE [Concomitant]
     Indication: HYPERTENSION
  6. SIMVASTATINA [Concomitant]
     Indication: BLOOD CHOLESTEROL INCREASED
  7. OMEPRAZOL [Concomitant]
     Indication: PROPHYLAXIS AGAINST GASTROINTESTINAL ULCER
  8. ESPIRONOLACTONA [Concomitant]
     Indication: ARRHYTHMIA

REACTIONS (2)
  - Dyspnoea [Recovered/Resolved]
  - Memory impairment [Not Recovered/Not Resolved]
